FAERS Safety Report 8783368 (Version 1)
Quarter: 2012Q4

REPORT INFORMATION
  Report Type: Report from Study
  Country: US (occurrence: US)
  Receive Date: 20120913
  Receipt Date: 20120913
  Transmission Date: 20130627
  Serious: No
  Sender: FDA-Public Use
  Company Number: US-VERTEX PHARMACEUTICAL INC.-AE-2012-008240

PATIENT

DRUGS (10)
  1. INCIVEK [Suspect]
     Indication: HEPATITIS C
     Route: 048
     Dates: start: 20120429
  2. PEGASYS [Concomitant]
     Indication: HEPATITIS C
     Route: 058
     Dates: start: 20120429
  3. RIBAPAK [Concomitant]
     Indication: HEPATITIS C
     Route: 048
     Dates: start: 20120429
  4. ASPIRIN [Concomitant]
  5. BYSTOLIC [Concomitant]
  6. XANAX [Concomitant]
  7. ZETIA [Concomitant]
  8. LOSARTAN POT [Concomitant]
  9. NORCO [Concomitant]
  10. BENADRYL [Concomitant]

REACTIONS (6)
  - Mood altered [Unknown]
  - Crying [Unknown]
  - Irritability [Unknown]
  - Anal pruritus [Recovered/Resolved]
  - Rash [Unknown]
  - Pruritus [Unknown]
